FAERS Safety Report 6668344-0 (Version None)
Quarter: 2010Q2

REPORT INFORMATION
  Report Type: 
  Country: None (occurrence: None)
  Receive Date: 20100406
  Receipt Date: 20100326
  Transmission Date: 20101027
  Serious: Yes (Other)
  Sender: FDA-Public Use
  Company Number: CA-JNJFOC-20100308566

PATIENT
  Sex: Male
  Weight: 85 kg

DRUGS (1)
  1. REMICADE [Suspect]
     Indication: CROHN'S DISEASE
     Route: 042

REACTIONS (7)
  - ABDOMINAL PAIN [None]
  - ANAL HAEMORRHAGE [None]
  - ASTHENIA [None]
  - DECREASED APPETITE [None]
  - DEFAECATION URGENCY [None]
  - FATIGUE [None]
  - THROMBOSIS [None]
